FAERS Safety Report 21416199 (Version 3)
Quarter: 2022Q4

REPORT INFORMATION
  Report Type: Report from Study
  Country: CO (occurrence: CO)
  Receive Date: 20221006
  Receipt Date: 20221223
  Transmission Date: 20230113
  Serious: Yes (Other)
  Sender: FDA-Public Use
  Company Number: CO-SA-SAC20221003001119

PATIENT
  Age: 47 Year
  Sex: Male

DRUGS (7)
  1. ALEMTUZUMAB [Suspect]
     Active Substance: ALEMTUZUMAB
     Indication: Multiple sclerosis
     Dosage: 12 MG, QCY
     Dates: start: 20210703
  2. ALEMTUZUMAB [Suspect]
     Active Substance: ALEMTUZUMAB
     Dosage: 12MG, EVERY CYCLE
     Route: 042
     Dates: start: 20221205, end: 20221207
  3. ACETAMINOPHEN [Concomitant]
     Active Substance: ACETAMINOPHEN
  4. TRAMADOL [Concomitant]
     Active Substance: TRAMADOL
  5. QUETIAPINE [Concomitant]
     Active Substance: QUETIAPINE
  6. PREGABALIN [Concomitant]
     Active Substance: PREGABALIN
  7. FLUOXETINE [Concomitant]
     Active Substance: FLUOXETINE HYDROCHLORIDE
     Indication: Depression
     Dosage: UNK UNK, QD
     Route: 048

REACTIONS (3)
  - Hemihypoaesthesia [Unknown]
  - Anxiety [Unknown]
  - Headache [Unknown]

NARRATIVE: CASE EVENT DATE: 20220930
